FAERS Safety Report 4752935-8 (Version None)
Quarter: 2005Q3

REPORT INFORMATION
  Report Type: 
  Country: None (occurrence: None)
  Receive Date: 20050823
  Receipt Date: 20050502
  Transmission Date: 20060218
  Serious: Yes (Other)
  Sender: FDA-Public Use
  Company Number: 18154

PATIENT
  Age: 70 Year
  Sex: Male
  Weight: 84.369 kg

DRUGS (1)
  1. FENOLDOPAM MESYLATE [Suspect]
     Indication: HYPERTENSION
     Dosage: TITRATED ACCORDING TO B/P
     Dates: start: 20050430, end: 20050503

REACTIONS (1)
  - EXTRAVASATION [None]
